FAERS Safety Report 4690063-0 (Version None)
Quarter: 2005Q2

REPORT INFORMATION
  Report Type: 
  Country: None (occurrence: None)
  Receive Date: 20050614
  Receipt Date: 20050531
  Transmission Date: 20051028
  Serious: Yes (Other)
  Sender: FDA-Public Use
  Company Number: S05-UKI-02111-01

PATIENT
  Age: 63 Year
  Sex: Male

DRUGS (2)
  1. CIPRALEX           (ESCITALORAM) [Suspect]
     Indication: DEPRESSION
     Dosage: 10 MG QD PO
     Route: 048
     Dates: start: 20050208, end: 20050502
  2. ZOPICLONE [Concomitant]

REACTIONS (4)
  - BLOOD GLUCOSE DECREASED [None]
  - MEMORY IMPAIRMENT [None]
  - SOMNOLENCE [None]
  - THIRST [None]
